FAERS Safety Report 5842041-3 (Version None)
Quarter: 2008Q3

REPORT INFORMATION
  Report Type: 
  Country: None (occurrence: None)
  Receive Date: 20080731
  Receipt Date: 20080624
  Transmission Date: 20090109
  Serious: No
  Sender: FDA-Public Use
  Company Number: US200803003266

PATIENT
  Age: 70 Year
  Sex: Female
  Weight: 83.4 kg

DRUGS (7)
  1. BYETTA [Suspect]
     Indication: TYPE 2 DIABETES MELLITUS
     Dosage: 5 UG, 2/D, SUBCUTNEOUS, 10 UG, 2/D, SUBCUTANEOUS
     Route: 058
     Dates: start: 20071101, end: 20080401
  2. BYETTA [Suspect]
     Indication: TYPE 2 DIABETES MELLITUS
     Dosage: 5 UG, 2/D, SUBCUTNEOUS, 10 UG, 2/D, SUBCUTANEOUS
     Route: 058
     Dates: start: 20080401
  3. BYETTA [Suspect]
  4. EXENATIDE PEN, DISPOSABLE DEVICE (EXENATIDE PEN, PEN, DISPOSABLE [Concomitant]
  5. CHROMIUM PICOLINATE (CHROMIUM PICOLINATE) [Concomitant]
  6. ANTIHISTAMINES [Concomitant]
  7. SYNTHROID [Concomitant]

REACTIONS (7)
  - DECREASED APPETITE [None]
  - INCORRECT DOSE ADMINISTERED [None]
  - INJECTION SITE HAEMATOMA [None]
  - INJECTION SITE HAEMORRHAGE [None]
  - INJECTION SITE PAIN [None]
  - NAUSEA [None]
  - WEIGHT DECREASED [None]
